FAERS Safety Report 20114072 (Version 2)
Quarter: 2021Q4

REPORT INFORMATION
  Report Type: Spontaneous
  Country: JP (occurrence: JP)
  Receive Date: 20211125
  Receipt Date: 20211213
  Transmission Date: 20220303
  Serious: Yes (Hospitalization)
  Sender: FDA-Public Use
  Company Number: JP-TEVA-2021-JP-1979914

PATIENT
  Age: 74 Year
  Sex: Female

DRUGS (3)
  1. PREGABALIN [Suspect]
     Active Substance: PREGABALIN
     Indication: Post herpetic neuralgia
     Dosage: 150 MILLIGRAM DAILY; FOR 10 YEARS
     Route: 065
  2. BROTIZOLAM [Concomitant]
     Active Substance: BROTIZOLAM
     Indication: Insomnia
     Dosage: .25 MILLIGRAM DAILY; FOR 11 YEARS
     Route: 065
  3. TRAMADOL HYDROCHLORIDE AND ACETAMINOPHEN [Concomitant]
     Active Substance: ACETAMINOPHEN\TRAMADOL HYDROCHLORIDE
     Indication: Pain
     Route: 065

REACTIONS (13)
  - Dyspnoea [Unknown]
  - Decreased appetite [Unknown]
  - Insomnia [Recovered/Resolved]
  - Lacrimation increased [Unknown]
  - Restlessness [Unknown]
  - Cold sweat [Unknown]
  - Headache [Unknown]
  - Tremor [Unknown]
  - Epigastric discomfort [Unknown]
  - Depression [Recovered/Resolved]
  - Suicidal ideation [Recovered/Resolved]
  - Anxiety [Recovered/Resolved]
  - Withdrawal syndrome [Unknown]
